FAERS Safety Report 17974835 (Version 3)
Quarter: 2020Q4

REPORT INFORMATION
  Report Type: Report from Study
  Country: US (occurrence: US)
  Receive Date: 20200702
  Receipt Date: 20201120
  Transmission Date: 20210113
  Serious: Yes (Other)
  Sender: FDA-Public Use
  Company Number: US-SHIRE-US202019762

PATIENT
  Sex: Female
  Weight: 106.58 kg

DRUGS (25)
  1. VALACYCLOVIR [Concomitant]
     Active Substance: VALACYCLOVIR HYDROCHLORIDE
  2. CRESTOR [Concomitant]
     Active Substance: ROSUVASTATIN CALCIUM
  3. CYMBALTA [Concomitant]
     Active Substance: DULOXETINE HYDROCHLORIDE
  4. NORCO [Concomitant]
     Active Substance: ACETAMINOPHEN\HYDROCODONE BITARTRATE
  5. PRAZOSIN. [Concomitant]
     Active Substance: PRAZOSIN
  6. VITAMIN D2 [Concomitant]
     Active Substance: ERGOCALCIFEROL
  7. MELOXICAM. [Concomitant]
     Active Substance: MELOXICAM
     Indication: RASH
     Route: 065
  8. MODAFINIL. [Concomitant]
     Active Substance: MODAFINIL
  9. TRULICITY [Concomitant]
     Active Substance: DULAGLUTIDE
  10. ESTRACE [Concomitant]
     Active Substance: ESTRADIOL
  11. AZITHROMYCIN ANHYDROUS. [Concomitant]
     Active Substance: AZITHROMYCIN ANHYDROUS
  12. NITROGLYCERIN. [Concomitant]
     Active Substance: NITROGLYCERIN
  13. LUNESTA [Concomitant]
     Active Substance: ESZOPICLONE
  14. BENICAR [Concomitant]
     Active Substance: OLMESARTAN MEDOXOMIL
  15. HUMAN NORMAL IMMUNOGLOBULIN; LIQUID 20 [Suspect]
     Active Substance: HUMAN IMMUNOGLOBULIN G
     Dosage: 30 GRAM, 1X/2WKS
     Route: 065
  16. HYDRALAZINE [Concomitant]
     Active Substance: HYDRALAZINE HYDROCHLORIDE
  17. CYANOCOBALAMIN. [Concomitant]
     Active Substance: CYANOCOBALAMIN
  18. EVOXAC [Concomitant]
     Active Substance: CEVIMELINE HYDROCHLORIDE
  19. DIPHENHYDRAMINE. [Concomitant]
     Active Substance: DIPHENHYDRAMINE
  20. CARVEDILOL. [Concomitant]
     Active Substance: CARVEDILOL
  21. HUMAN NORMAL IMMUNOGLOBULIN; LIQUID 20 [Suspect]
     Active Substance: HUMAN IMMUNOGLOBULIN G
     Indication: PRIMARY IMMUNODEFICIENCY SYNDROME
     Dosage: 30 GRAM, 1X/2WKS
     Route: 058
     Dates: start: 20190703
  22. LIDOCAINE. [Concomitant]
     Active Substance: LIDOCAINE
  23. EPINEPHRINE. [Concomitant]
     Active Substance: EPINEPHRINE
  24. PROTONIX [OMEPRAZOLE] [Concomitant]
     Active Substance: OMEPRAZOLE
  25. NP THYROID [Concomitant]
     Active Substance: LEVOTHYROXINE\LIOTHYRONINE

REACTIONS (12)
  - Oral candidiasis [Unknown]
  - Rash [Unknown]
  - Adrenal neoplasm [Unknown]
  - Blood pressure abnormal [Unknown]
  - Hypertension [Unknown]
  - Keratorhexis [Unknown]
  - Candida infection [Unknown]
  - Sjogren^s syndrome [Unknown]
  - Mouth ulceration [Unknown]
  - Autoimmune disorder [Unknown]
  - Spinal osteoarthritis [Unknown]
  - Arthralgia [Unknown]
